FAERS Safety Report 4474337-4 (Version None)
Quarter: 2004Q4

REPORT INFORMATION
  Report Type: 
  Country: None (occurrence: None)
  Receive Date: 20041012
  Receipt Date: 20041004
  Transmission Date: 20050328
  Serious: Yes (Hospitalization)
  Sender: FDA-Public Use
  Company Number: 2004CG01967

PATIENT
  Age: 59 Year
  Sex: Male

DRUGS (4)
  1. TENORMIN [Suspect]
     Indication: ISCHAEMIC CARDIOMYOPATHY
     Dosage: 1 DF DAILY PO
     Route: 048
     Dates: start: 19980101, end: 20040701
  2. PLAVIX [Concomitant]
  3. TRIATEC [Concomitant]
  4. KARDEGIC [Concomitant]

REACTIONS (1)
  - SYSTEMIC LUPUS ERYTHEMATOSUS [None]
